FAERS Safety Report 16427701 (Version 1)
Quarter: 2019Q2

REPORT INFORMATION
  Report Type: Spontaneous
  Country: RO (occurrence: RO)
  Receive Date: 20190613
  Receipt Date: 20190613
  Transmission Date: 20190711
  Serious: Yes (Hospitalization, Other)
  Sender: FDA-Public Use
  Company Number: RO-ASTRAZENECA-2019SE84208

PATIENT
  Age: 64 Year
  Sex: Male

DRUGS (6)
  1. RAMIPRIL. [Concomitant]
     Active Substance: RAMIPRIL
  2. BRILIQUE [Suspect]
     Active Substance: TICAGRELOR
     Indication: STENT PLACEMENT
     Route: 048
  3. NITROMINT [Concomitant]
     Active Substance: NITROGLYCERIN
  4. ASA [Concomitant]
     Active Substance: ASPIRIN
  5. BRILIQUE [Suspect]
     Active Substance: TICAGRELOR
     Indication: ANGINA UNSTABLE
     Route: 048
  6. SORTIS [Concomitant]
     Active Substance: ATORVASTATIN

REACTIONS (1)
  - Angina unstable [Unknown]
